FAERS Safety Report 18857528 (Version 1)
Quarter: 2021Q1

REPORT INFORMATION
  Report Type: Spontaneous
  Country: DK (occurrence: DK)
  Receive Date: 20210208
  Receipt Date: 20210208
  Transmission Date: 20210420
  Serious: Yes (Hospitalization)
  Sender: FDA-Public Use
  Company Number: DK-TEVA-2021-DK-1876244

PATIENT
  Age: 91 Year
  Sex: Female

DRUGS (5)
  1. PHENERGAN [Suspect]
     Active Substance: PROMETHAZINE HYDROCHLORIDE
     Indication: INSOMNIA
     Dosage: STRENGTH: 25 MG, UNIT DOSE: 50 MG
     Route: 048
     Dates: start: 20180706
  2. MIANSERIN [MIANSERIN HYDROCHLORIDE] [Suspect]
     Active Substance: MIANSERIN HYDROCHLORIDE
     Indication: DEPRESSION
     Dosage: STRENGTH: 30 MG, UNIT DOSE: 30 MG
     Route: 048
     Dates: start: 20131218
  3. LYRICA [Suspect]
     Active Substance: PREGABALIN
     Indication: SEDATIVE THERAPY
     Dosage: STRENGTH: 20 MG/ML, UNIT DOSE: 8ML
     Route: 048
     Dates: start: 2018
  4. CITALOPRAM ^ORIFARM^ [Suspect]
     Active Substance: CITALOPRAM HYDROBROMIDE
     Indication: DEPRESSION
     Dosage: STRENGTH: 10 MG, UNIT DOSE: 10 MG
     Route: 048
     Dates: start: 2018
  5. APOZEPAM [Suspect]
     Active Substance: DIAZEPAM
     Indication: SEDATIVE THERAPY
     Dosage: STRENGTH: 2MG. DOSAGE: 2 MG IN THE MORNING AND MIDDAY, 3MG IN THE EVENING.
     Route: 048
     Dates: start: 20180615

REACTIONS (3)
  - Fall [Unknown]
  - Fatigue [Unknown]
  - Presyncope [Unknown]

NARRATIVE: CASE EVENT DATE: 202101
